FAERS Safety Report 6329240-1 (Version None)
Quarter: 2009Q3

REPORT INFORMATION
  Report Type: 
  Country: None (occurrence: None)
  Receive Date: 20090818
  Receipt Date: 20090511
  Transmission Date: 20100115
  Serious: No
  Sender: FDA-Public Use
  Company Number: WAES 0904USA01549

PATIENT
  Age: 61 Year
  Sex: Female

DRUGS (3)
  1. JANUVIA [Suspect]
     Indication: TYPE 2 DIABETES MELLITUS
     Dosage: 100 MG/DAILY/PO
     Route: 048
     Dates: start: 20081101
  2. ASPIRIN [Concomitant]
  3. METFORMIN HCL [Concomitant]

REACTIONS (1)
  - WEIGHT DECREASED [None]
